FAERS Safety Report 13654531 (Version 2)
Quarter: 2018Q3

REPORT INFORMATION
  Report Type: Spontaneous
  Country: US (occurrence: US)
  Receive Date: 20170615
  Receipt Date: 20180928
  Transmission Date: 20181010
  Serious: Yes (Other)
  Sender: FDA-Public Use
  Company Number: PHEH2017US017634

PATIENT
  Sex: Female

DRUGS (2)
  1. COSENTYX [Suspect]
     Active Substance: SECUKINUMAB
     Indication: PRODUCT USED FOR UNKNOWN INDICATION
     Dosage: UNK
     Route: 065
     Dates: start: 201606
  2. COSENTYX [Suspect]
     Active Substance: SECUKINUMAB
     Dosage: 300 MG, QMO
     Route: 065

REACTIONS (4)
  - Drug ineffective [Not Recovered/Not Resolved]
  - Herpes zoster [Unknown]
  - Psoriasis [Unknown]
  - Psoriatic arthropathy [Unknown]
